FAERS Safety Report 20638885 (Version 1)
Quarter: 2022Q1

REPORT INFORMATION
  Report Type: Spontaneous
  Country: AT (occurrence: AT)
  Receive Date: 20220325
  Receipt Date: 20220325
  Transmission Date: 20220423
  Serious: Yes (Other)
  Sender: FDA-Public Use
  Company Number: AT-GE HEALTHCARE-2022CSU002039

PATIENT
  Age: 68 Year
  Sex: Female
  Weight: 79 kg

DRUGS (2)
  1. IOHEXOL [Suspect]
     Active Substance: IOHEXOL
     Indication: Diagnostic procedure
     Dosage: 80 ML, SINGLE
     Route: 042
     Dates: start: 20220322, end: 20220322
  2. IOHEXOL [Suspect]
     Active Substance: IOHEXOL
     Indication: Mesothelioma

REACTIONS (3)
  - Sneezing [Unknown]
  - Urticaria [Unknown]
  - Flushing [Unknown]

NARRATIVE: CASE EVENT DATE: 20220322
